FAERS Safety Report 21218027 (Version 3)
Quarter: 2022Q3

REPORT INFORMATION
  Report Type: Report from Study
  Country: JP (occurrence: JP)
  Receive Date: 20220816
  Receipt Date: 20220906
  Transmission Date: 20221026
  Serious: Yes (Other)
  Sender: FDA-Public Use
  Company Number: JP-ONO-2022JP022346

PATIENT
  Age: 51 Year
  Sex: Male

DRUGS (8)
  1. BRAFTOVI [Suspect]
     Active Substance: ENCORAFENIB
     Indication: Colon cancer
     Dosage: UNK
     Route: 048
     Dates: start: 20220628, end: 20220713
  2. BRAFTOVI [Suspect]
     Active Substance: ENCORAFENIB
     Dosage: UNK
     Route: 048
     Dates: start: 20220719, end: 20220809
  3. BRAFTOVI [Suspect]
     Active Substance: ENCORAFENIB
     Dosage: UNK(DOSES REDUCED BY 2 LEVELS )
     Route: 048
     Dates: start: 20220823
  4. MEKTOVI [Suspect]
     Active Substance: BINIMETINIB
     Indication: Colon cancer
     Dosage: UNK
     Route: 048
     Dates: start: 20220628, end: 20220713
  5. MEKTOVI [Suspect]
     Active Substance: BINIMETINIB
     Dosage: UNK (DOSES REDUCED BY 1 LEVEL )
     Route: 048
     Dates: start: 20220719, end: 20220809
  6. MEKTOVI [Suspect]
     Active Substance: BINIMETINIB
     Dosage: UNK(DOSES REDUCED BY 2 LEVELS )
     Route: 048
     Dates: start: 20220823
  7. CETUXIMAB [Concomitant]
     Active Substance: CETUXIMAB
     Indication: Colon cancer
     Dosage: UNK
     Route: 065
     Dates: start: 20220628
  8. CETUXIMAB [Concomitant]
     Active Substance: CETUXIMAB
     Dosage: UNK UNK, Q2W
     Route: 065
     Dates: start: 20220719

REACTIONS (3)
  - Erythema nodosum [Recovered/Resolved]
  - Serous retinopathy [Recovered/Resolved]
  - Myalgia [Recovered/Resolved]

NARRATIVE: CASE EVENT DATE: 20220713
